FAERS Safety Report 25268572 (Version 1)
Quarter: 2025Q2

REPORT INFORMATION
  Report Type: Spontaneous
  Country: US (occurrence: None)
  Receive Date: 20250502
  Receipt Date: 20250502
  Transmission Date: 20250716
  Serious: Yes (Other)
  Sender: FDA-CTU
  Company Number: None

PATIENT

DRUGS (1)
  1. REZDIFFRA [Suspect]
     Active Substance: RESMETIROM
     Indication: Hepatic steatosis
     Dosage: 1  DF DOSAGE FORM DAILY ORAL
     Route: 048
     Dates: start: 20250402, end: 20250421

REACTIONS (1)
  - Rash [None]

NARRATIVE: CASE EVENT DATE: 20250419
